FAERS Safety Report 4486449-X (Version None)
Quarter: 2004Q4

REPORT INFORMATION
  Report Type: 
  Country: None (occurrence: None)
  Receive Date: 20041022
  Receipt Date: 20041013
  Transmission Date: 20050328
  Serious: Yes (Disabling)
  Sender: FDA-Public Use
  Company Number: HQWYE753914OCT04

PATIENT
  Sex: Female

DRUGS (1)
  1. EFFEXOR XR [Suspect]
     Indication: ANXIETY

REACTIONS (9)
  - ADJUSTMENT DISORDER [None]
  - APATHY [None]
  - CRYING [None]
  - DRUG WITHDRAWAL SYNDROME [None]
  - FEELING OF DESPAIR [None]
  - FLAT AFFECT [None]
  - JUDGEMENT IMPAIRED [None]
  - MALAISE [None]
  - SUICIDAL IDEATION [None]
